FAERS Safety Report 20704699 (Version 1)
Quarter: 2022Q2

REPORT INFORMATION
  Report Type: Spontaneous
  Country: US (occurrence: None)
  Receive Date: 20220412
  Receipt Date: 20220412
  Transmission Date: 20220721
  Serious: Yes (Other)
  Sender: FDA-Public Use
  Company Number: None

PATIENT
  Age: 28 Year
  Sex: Female
  Weight: 56.25 kg

DRUGS (7)
  1. KYLEENA [Suspect]
     Active Substance: LEVONORGESTREL
     Indication: Contraception
     Route: 067
     Dates: start: 20210708, end: 20220408
  2. asthma (prn) [Concomitant]
  3. EPIPEN [Concomitant]
     Active Substance: EPINEPHRINE
  4. mutli-vitamin [Concomitant]
  5. liquid iron (Wellessee) [Concomitant]
  6. probiotic [Concomitant]
  7. vitamin e and d [Concomitant]

REACTIONS (5)
  - Alopecia [None]
  - Oedema peripheral [None]
  - Weight increased [None]
  - Acne cystic [None]
  - Face oedema [None]

NARRATIVE: CASE EVENT DATE: 20210901
